FAERS Safety Report 11467890 (Version 2)
Quarter: 2015Q4

REPORT INFORMATION
  Report Type: Spontaneous
  Country: JP (occurrence: JP)
  Receive Date: 20150908
  Receipt Date: 20151123
  Transmission Date: 20160304
  Serious: Yes (Other)
  Sender: FDA-Public Use
  Company Number: JP-PFIZER INC-2015286958

PATIENT
  Age: 78 Year
  Sex: Male

DRUGS (3)
  1. NORVASC [Suspect]
     Active Substance: AMLODIPINE BESYLATE
     Dosage: 5 MG, 1X/DAY
     Route: 048
  2. MUCOSTA [Concomitant]
     Active Substance: REBAMIPIDE
     Dosage: 100 MG, 3X/DAY
     Route: 048
     Dates: start: 20090925
  3. ACINON [Concomitant]
     Active Substance: NIZATIDINE
     Dosage: 150 MG, 2X/DAY
     Route: 048
     Dates: start: 20090925

REACTIONS (4)
  - Large intestine polyp [Recovered/Resolved]
  - Gastric polyps [Recovered/Resolved]
  - Large intestine polyp [Recovered/Resolved]
  - Gastric polyps [Recovered/Resolved]

NARRATIVE: CASE EVENT DATE: 20150817
